FAERS Safety Report 5367245-8 (Version None)
Quarter: 2007Q2

REPORT INFORMATION
  Report Type: 
  Country: None (occurrence: None)
  Receive Date: 20070622
  Receipt Date: 20070614
  Transmission Date: 20071010
  Serious: Yes (Other)
  Sender: FDA-Public Use
  Company Number: US-ASTRAZENECA-2007UW06870

PATIENT
  Age: 63 Year
  Sex: Female
  Weight: 54.9 kg

DRUGS (6)
  1. ARIMIDEX [Suspect]
     Indication: BREAST CANCER
  2. MULTIVITAMIN [Concomitant]
  3. CALCIUM CHLORIDE [Concomitant]
  4. FISH OIL [Concomitant]
  5. GLUCOSAMINE SULFATE [Concomitant]
  6. ADVIL [Concomitant]

REACTIONS (8)
  - ARTHRALGIA [None]
  - CARPAL TUNNEL SYNDROME [None]
  - FEELING COLD [None]
  - HYPOAESTHESIA [None]
  - JOINT SWELLING [None]
  - MOOD ALTERED [None]
  - PANIC ATTACK [None]
  - RHEUMATOID ARTHRITIS [None]
